FAERS Safety Report 8530065-7 (Version None)
Quarter: 2012Q3

REPORT INFORMATION
  Report Type: 
  Country: None (occurrence: None)
  Receive Date: 20120723
  Receipt Date: 20120718
  Transmission Date: 20120928
  Serious: Yes (Death, Other)
  Sender: FDA-Public Use
  Company Number: PHHY2012FR061941

PATIENT
  Sex: Male

DRUGS (14)
  1. MORPHINE SULFATE [Suspect]
     Dosage: 3 DF (10 MG), BID
     Route: 048
     Dates: start: 20120620, end: 20120627
  2. VALSARTAN  AND HYDROCHLOROTHIAZIDE [Concomitant]
  3. POTASSIUM CHLORIDE [Concomitant]
     Dates: start: 20120301
  4. LEXOMIL [Concomitant]
     Dates: start: 20120301
  5. BISOPROLOL FUMARATE [Suspect]
  6. ASPIRIN [Concomitant]
  7. LEVOFLOXACIN [Suspect]
     Dosage: 1 DF, DAILY
     Dates: start: 20120626
  8. PANTOPRAZOLE SODIUM [Concomitant]
  9. VALSARTAN [Suspect]
     Dosage: 1 DF OF 80 MG, DAILY
     Route: 048
     Dates: start: 20120622
  10. TRAMADOL HYDROCHLORIDE [Suspect]
     Dosage: 100 MG, UNK
     Dates: start: 20120620
  11. EFFIENT [Concomitant]
  12. EZETIMIBE [Concomitant]
  13. NITROGLYCERIN [Concomitant]
     Dates: start: 20120301
  14. PENTASA [Concomitant]
     Dates: start: 20120301

REACTIONS (8)
  - VOMITING [None]
  - ELECTROCARDIOGRAM QT PROLONGED [None]
  - LOSS OF CONSCIOUSNESS [None]
  - BRONCHIAL DISORDER [None]
  - TORSADE DE POINTES [None]
  - SUBILEUS [None]
  - ABDOMINAL ADHESIONS [None]
  - ABDOMINAL PAIN [None]
